FAERS Safety Report 24907208 (Version 1)
Quarter: 2025Q1

REPORT INFORMATION
  Report Type: Spontaneous
  Country: CN (occurrence: CN)
  Receive Date: 20250130
  Receipt Date: 20250130
  Transmission Date: 20250409
  Serious: Yes (Death, Hospitalization, Other)
  Sender: AZURITY PHARMACEUTICALS
  Company Number: CN-AZURITY PHARMACEUTICALS, INC.-AZR202501-000402

PATIENT
  Age: 50 Year
  Sex: Female

DRUGS (1)
  1. METHOTREXATE [Suspect]
     Active Substance: METHOTREXATE
     Indication: Rheumatoid arthritis
     Route: 048

REACTIONS (7)
  - Haemorrhage intracranial [Fatal]
  - Epidermolysis bullosa [Unknown]
  - Hepatotoxicity [Unknown]
  - Pancytopenia [Unknown]
  - Pyrexia [Unknown]
  - Mucocutaneous ulceration [Unknown]
  - Toxicity to various agents [Unknown]
